FAERS Safety Report 4937749-8 (Version None)
Quarter: 2006Q1

REPORT INFORMATION
  Report Type: 
  Country: None (occurrence: None)
  Receive Date: 20060306
  Receipt Date: 20060216
  Transmission Date: 20060701
  Serious: Yes (Other)
  Sender: FDA-Public Use
  Company Number: US169231

PATIENT
  Age: 14 Year
  Sex: Female

DRUGS (1)
  1. ENBREL [Suspect]

REACTIONS (16)
  - ABDOMINAL PAIN [None]
  - APHASIA [None]
  - BLOOD FIBRINOGEN DECREASED [None]
  - BLOOD TRIGLYCERIDES INCREASED [None]
  - BRADYCARDIA [None]
  - COMA [None]
  - CONVULSION [None]
  - FIBRIN D DIMER INCREASED [None]
  - HEMIPLEGIA [None]
  - HEPATOMEGALY [None]
  - HISTIOCYTOSIS HAEMATOPHAGIC [None]
  - HYPOTENSION [None]
  - JUVENILE ARTHRITIS [None]
  - LIPODYSTROPHY ACQUIRED [None]
  - PANCYTOPENIA [None]
  - POLYARTHRITIS [None]
